FAERS Safety Report 5745868-1 (Version None)
Quarter: 2008Q2

REPORT INFORMATION
  Report Type: 
  Country: None (occurrence: None)
  Receive Date: 20080520
  Receipt Date: 20080508
  Transmission Date: 20081010
  Serious: Yes (Other)
  Sender: FDA-Public Use
  Company Number: MEDI-0006814

PATIENT
  Sex: Female

DRUGS (1)
  1. SYNAGIS [Suspect]
     Indication: ANTIVIRAL PROPHYLAXIS
     Dosage: SUBCUTANEOUS

REACTIONS (4)
  - BRONCHOPULMONARY DYSPLASIA [None]
  - DYSPNOEA [None]
  - GENERAL PHYSICAL HEALTH DETERIORATION [None]
  - ILL-DEFINED DISORDER [None]
